FAERS Safety Report 7937517-9 (Version None)
Quarter: 2011Q4

REPORT INFORMATION
  Report Type: 
  Country: None (occurrence: None)
  Receive Date: 20111123
  Receipt Date: 20111114
  Transmission Date: 20120403
  Serious: Yes (Disabling)
  Sender: FDA-Public Use
  Company Number: CA-ASTRAZENECA-2011SE68846

PATIENT
  Age: 68 Year
  Sex: Female
  Weight: 72.6 kg

DRUGS (10)
  1. DOMEPERIDONE [Concomitant]
  2. SANDOZ BISOPROLOL [Concomitant]
     Route: 048
  3. ASCORBIC ACID [Concomitant]
     Route: 048
  4. ASPIRIN [Concomitant]
     Route: 048
  5. ZANTAC [Concomitant]
     Route: 048
  6. ATACAND [Suspect]
     Route: 048
  7. NEXIUM [Concomitant]
     Route: 048
  8. BAMBOO SIL [Concomitant]
  9. MULTI-VITAMINS [Concomitant]
     Route: 048
  10. LOVAZA [Concomitant]
     Route: 048

REACTIONS (12)
  - MUSCLE SPASMS [None]
  - MYALGIA [None]
  - NAUSEA [None]
  - HEADACHE [None]
  - URINE ODOUR ABNORMAL [None]
  - ACTIVITIES OF DAILY LIVING IMPAIRED [None]
  - CHROMATURIA [None]
  - GENERAL PHYSICAL HEALTH DETERIORATION [None]
  - MUSCULAR WEAKNESS [None]
  - HYPOKINESIA [None]
  - PAIN [None]
  - ABDOMINAL DISTENSION [None]
